FAERS Safety Report 13145471 (Version 1)
Quarter: 2017Q1

REPORT INFORMATION
  Report Type: Spontaneous
  Country: US (occurrence: US)
  Receive Date: 20170124
  Receipt Date: 20170124
  Transmission Date: 20170428
  Serious: No
  Sender: FDA-Public Use
  Company Number: US-MYLANLABS-2015M1046540

PATIENT
  Sex: Female

DRUGS (15)
  1. PLAVIX [Concomitant]
     Active Substance: CLOPIDOGREL BISULFATE
     Dosage: 75 MG, QD
     Route: 048
     Dates: start: 20140509
  2. PRAVASTATIN. [Concomitant]
     Active Substance: PRAVASTATIN
     Dosage: 20 MG, QD
     Route: 048
     Dates: start: 20140831
  3. NITROSTAT [Concomitant]
     Active Substance: NITROGLYCERIN
     Dosage: 0.4 MG, PRN
     Route: 060
     Dates: start: 20100319
  4. LOVAZA [Concomitant]
     Active Substance: OMEGA-3-ACID ETHYL ESTERS
     Dosage: 4 G, QD
     Route: 048
     Dates: start: 20140326
  5. NORCO [Concomitant]
     Active Substance: ACETAMINOPHEN\HYDROCODONE BITARTRATE
     Dosage: 1 DF, PRN
     Dates: start: 20150703
  6. VOLTAREN [Concomitant]
     Active Substance: DICLOFENAC SODIUM
     Indication: ARTHRALGIA
     Dosage: UNK, PRN
     Dates: start: 20151009
  7. LETROZOLE. [Suspect]
     Active Substance: LETROZOLE
     Dosage: UNK
  8. LETROZOLE. [Suspect]
     Active Substance: LETROZOLE
     Dosage: 2.5 MG, QD
     Dates: start: 20151117
  9. VENTOLIN HFA [Concomitant]
     Active Substance: ALBUTEROL SULFATE
     Dosage: 2 PUFFS Q 4-6 HRS PRN
     Route: 055
     Dates: start: 20140424
  10. CALCIUM [Concomitant]
     Active Substance: CALCIUM
     Dosage: 2 DF, QD
     Dates: start: 20140903
  11. IBRANCE [Concomitant]
     Active Substance: PALBOCICLIB
     Indication: BREAST CANCER METASTATIC
     Dosage: 125 MG, QW FOR 3 WEEKS THEN SKIP ONE WEEK
     Dates: start: 20151022, end: 20151030
  12. NEXIUM [Suspect]
     Active Substance: ESOMEPRAZOLE MAGNESIUM
     Dosage: 40 MG, QD
     Route: 048
     Dates: start: 20080327
  13. LETROZOLE. [Suspect]
     Active Substance: LETROZOLE
     Indication: BREAST CANCER METASTATIC
     Dosage: 2.5 MG, QD
     Dates: start: 20151022, end: 20151102
  14. FAMOTIDINE. [Concomitant]
     Active Substance: FAMOTIDINE
     Dosage: 40 MG, QD
     Route: 048
     Dates: start: 20140326
  15. POTASSIUM CL [Concomitant]
     Active Substance: POTASSIUM CHLORIDE
     Dosage: 10 MEQ, BID
     Route: 048
     Dates: start: 20150703

REACTIONS (1)
  - Dizziness [Unknown]
